FAERS Safety Report 18397649 (Version 1)
Quarter: 2020Q4

REPORT INFORMATION
  Report Type: Report from Study
  Country: None (occurrence: US)
  Receive Date: 20201019
  Receipt Date: 20201019
  Transmission Date: 20210114
  Serious: No
  Sender: FDA-Public Use
  Company Number: US-BIOVITRUM-2020US4049

PATIENT
  Age: 69 Year
  Sex: Female

DRUGS (2)
  1. KINERET [Suspect]
     Active Substance: ANAKINRA
     Indication: RHEUMATOID VASCULITIS
     Route: 058
     Dates: start: 20200326, end: 20201013
  2. KINERET [Suspect]
     Active Substance: ANAKINRA
     Indication: RHEUMATOID ARTHRITIS

REACTIONS (3)
  - Nodule [Unknown]
  - Off label use [Recovered/Resolved]
  - Eye infection [Recovering/Resolving]

NARRATIVE: CASE EVENT DATE: 20200326
